FAERS Safety Report 19012827 (Version 89)
Quarter: 2025Q1

REPORT INFORMATION
  Report Type: Report from Study
  Country: US (occurrence: US)
  Receive Date: 20210316
  Receipt Date: 20250325
  Transmission Date: 20250408
  Serious: Yes (Hospitalization, Other)
  Sender: TAKEDA
  Company Number: US-TAKEDA-2020TUS044918

PATIENT
  Age: 53 Year
  Sex: Female

DRUGS (27)
  1. ICATIBANT [Suspect]
     Active Substance: ICATIBANT ACETATE
     Indication: Immune system disorder
  2. ICATIBANT [Suspect]
     Active Substance: ICATIBANT ACETATE
     Indication: Hereditary angioedema
  3. ICATIBANT [Suspect]
     Active Substance: ICATIBANT ACETATE
  4. ICATIBANT [Suspect]
     Active Substance: ICATIBANT ACETATE
  5. ICATIBANT [Suspect]
     Active Substance: ICATIBANT ACETATE
     Dosage: 300 MILLIGRAM, Q2WEEKS
     Dates: start: 20201103
  6. ICATIBANT [Suspect]
     Active Substance: ICATIBANT ACETATE
     Dosage: 300 MILLIGRAM, Q2WEEKS
     Dates: start: 20201115
  7. ICATIBANT [Suspect]
     Active Substance: ICATIBANT ACETATE
     Dosage: 30 MILLIGRAM, QD
  8. ICATIBANT [Suspect]
     Active Substance: ICATIBANT ACETATE
  9. TAKHZYRO [Suspect]
     Active Substance: LANADELUMAB-FLYO
     Indication: Hereditary angioedema
     Dosage: 300 MILLIGRAM, Q2WEEKS
     Dates: start: 20200311
  10. TAKHZYRO [Suspect]
     Active Substance: LANADELUMAB-FLYO
     Indication: Immune system disorder
     Dosage: 300 MILLIGRAM, Q2WEEKS
     Dates: start: 20200811
  11. TAKHZYRO [Suspect]
     Active Substance: LANADELUMAB-FLYO
     Dosage: 300 MILLIGRAM, Q2WEEKS
     Dates: start: 20201013
  12. TAKHZYRO [Suspect]
     Active Substance: LANADELUMAB-FLYO
  13. TAKHZYRO [Suspect]
     Active Substance: LANADELUMAB-FLYO
     Dosage: 300 MILLIGRAM, Q2WEEKS
     Dates: start: 202010
  14. TAKHZYRO [Suspect]
     Active Substance: LANADELUMAB-FLYO
     Dosage: 2 MILLILITER, Q2WEEKS
     Dates: start: 20201103
  15. TAKHZYRO [Suspect]
     Active Substance: LANADELUMAB-FLYO
     Dosage: 300 MILLIGRAM, Q2WEEKS
     Dates: start: 20201104
  16. TAKHZYRO [Suspect]
     Active Substance: LANADELUMAB-FLYO
     Dosage: 2 MILLILITER, 2/WEEK
     Dates: start: 20201105
  17. TAKHZYRO [Suspect]
     Active Substance: LANADELUMAB-FLYO
     Dosage: 300 MILLIGRAM, 2/WEEK
     Dates: start: 20201114
  18. TAKHZYRO [Suspect]
     Active Substance: LANADELUMAB-FLYO
     Dosage: 300 MILLIGRAM, Q2WEEKS
     Dates: start: 202011
  19. TAKHZYRO [Suspect]
     Active Substance: LANADELUMAB-FLYO
     Dosage: 300 MILLIGRAM, Q2WEEKS
     Dates: start: 202012
  20. TAKHZYRO [Suspect]
     Active Substance: LANADELUMAB-FLYO
     Dosage: 300 MILLIGRAM, Q2WEEKS
     Dates: start: 202201
  21. TAKHZYRO [Suspect]
     Active Substance: LANADELUMAB-FLYO
     Dosage: 300 MILLIGRAM, Q2WEEKS
     Dates: start: 202202
  22. TAKHZYRO [Suspect]
     Active Substance: LANADELUMAB-FLYO
     Dosage: 2 MILLILITER, 2/WEEK
  23. TAKHZYRO [Suspect]
     Active Substance: LANADELUMAB-FLYO
     Dosage: 300 MILLIGRAM, Q2WEEKS
  24. TAKHZYRO [Suspect]
     Active Substance: LANADELUMAB-FLYO
     Dosage: 300 MILLIGRAM, Q2WEEKS
  25. HAEGARDA [Suspect]
     Active Substance: HUMAN C1-ESTERASE INHIBITOR
     Indication: Product used for unknown indication
  26. RUCONEST [Suspect]
     Active Substance: CONESTAT ALFA
     Indication: Product used for unknown indication
  27. EPINEPHRINE [Concomitant]
     Active Substance: EPINEPHRINE

REACTIONS (54)
  - Intracranial aneurysm [Not Recovered/Not Resolved]
  - Cataract [Unknown]
  - Open fracture [Unknown]
  - Cerebrovascular accident [Unknown]
  - Mast cell activation syndrome [Unknown]
  - Loss of consciousness [Unknown]
  - Hereditary angioedema [Recovered/Resolved]
  - Laryngeal oedema [Unknown]
  - Herpes zoster [Not Recovered/Not Resolved]
  - Infection [Unknown]
  - Cough [Recovered/Resolved]
  - Fall [Unknown]
  - Vision blurred [Unknown]
  - Drug ineffective [Unknown]
  - Confusional state [Unknown]
  - COVID-19 [Unknown]
  - Fatigue [Not Recovered/Not Resolved]
  - Lethargy [Unknown]
  - Vertigo [Unknown]
  - Migraine [Recovered/Resolved]
  - Dyspepsia [Unknown]
  - Food allergy [Recovered/Resolved]
  - Stress [Unknown]
  - Sinus disorder [Unknown]
  - Illness [Unknown]
  - Weight increased [Unknown]
  - Tonsillitis [Unknown]
  - Paranasal sinus discomfort [Unknown]
  - Bronchitis [Unknown]
  - Weight decreased [Unknown]
  - Ear pain [Recovered/Resolved]
  - Needle issue [Unknown]
  - Brain fog [Unknown]
  - Hypoaesthesia [Recovered/Resolved]
  - Tremor [Unknown]
  - Chills [Unknown]
  - Muscle spasms [Unknown]
  - Ehlers-Danlos syndrome [Unknown]
  - Joint dislocation [Unknown]
  - Product quality issue [Unknown]
  - Sinus congestion [Unknown]
  - Administration site pain [Unknown]
  - Dyspnoea [Unknown]
  - Abdominal distension [Unknown]
  - Nasopharyngitis [Unknown]
  - Multiple allergies [Unknown]
  - Hypersensitivity [Unknown]
  - Drug hypersensitivity [Unknown]
  - Injection site bruising [Unknown]
  - Nausea [Unknown]
  - Headache [Recovered/Resolved]
  - Dizziness [Unknown]
  - Injection site pain [Unknown]
  - Injection site swelling [Unknown]

NARRATIVE: CASE EVENT DATE: 20211218
